FAERS Safety Report 8541232-0 (Version None)
Quarter: 2012Q3

REPORT INFORMATION
  Report Type: 
  Country: None (occurrence: None)
  Receive Date: 20120726
  Receipt Date: 20120629
  Transmission Date: 20120928
  Serious: No
  Sender: FDA-Public Use
  Company Number: US-ASTRAZENECA-2012SE44652

PATIENT
  Sex: Male

DRUGS (3)
  1. SEROQUEL [Suspect]
     Dosage: GENERIC, 4 TABLETS OF 100 MG DAILY
     Route: 048
     Dates: start: 20120601
  2. LAMICTAL [Concomitant]
  3. SEROQUEL [Suspect]
     Route: 048
     Dates: start: 20120601

REACTIONS (7)
  - EUPHORIC MOOD [None]
  - HEADACHE [None]
  - DRUG INEFFECTIVE [None]
  - DRUG DOSE OMISSION [None]
  - THERAPEUTIC RESPONSE UNEXPECTED [None]
  - MANIA [None]
  - INITIAL INSOMNIA [None]
